FAERS Safety Report 10254894 (Version 2)
Quarter: 2014Q3

REPORT INFORMATION
  Report Type: Report from Study
  Country: IN (occurrence: IN)
  Receive Date: 20140624
  Receipt Date: 20140714
  Transmission Date: 20150326
  Serious: Yes (Hospitalization)
  Sender: FDA-Public Use
  Company Number: PHHY2014IN076759

PATIENT
  Age: 35 Year
  Sex: Male

DRUGS (1)
  1. SIMULECT [Suspect]
     Active Substance: BASILIXIMAB
     Indication: RENAL TRANSPLANT
     Dosage: 20 MG, UNK
     Route: 042
     Dates: start: 20140410

REACTIONS (3)
  - Infection [Recovering/Resolving]
  - Post procedural haemorrhage [Recovering/Resolving]
  - Kidney transplant rejection [Recovering/Resolving]
